FAERS Safety Report 12803334 (Version 1)
Quarter: 2016Q4

REPORT INFORMATION
  Report Type: Spontaneous
  Country: IT (occurrence: IT)
  Receive Date: 20161003
  Receipt Date: 20161003
  Transmission Date: 20170207
  Serious: Yes (Hospitalization)
  Sender: FDA-Public Use
  Company Number: IT-PFIZER INC-3142707

PATIENT
  Age: 64 Year
  Sex: Male

DRUGS (5)
  1. FENTANYL. [Suspect]
     Active Substance: FENTANYL
     Indication: ANAESTHESIA
     Dosage: 100 UG, FREQ: TOTAL
     Dates: start: 20151126, end: 20151126
  2. ROCURONIUM BROMIDE. [Suspect]
     Active Substance: ROCURONIUM BROMIDE
     Indication: ANAESTHESIA
     Dosage: 1 DF, FREQ: TOTAL
     Dates: start: 20151126, end: 20151126
  3. PROPOFOL. [Suspect]
     Active Substance: PROPOFOL
     Indication: ANAESTHESIA
     Dosage: 1 DF, FREQ: TOTAL
     Dates: start: 20151126, end: 20151126
  4. AMPICILLIN [Suspect]
     Active Substance: AMPICILLIN
     Indication: ANAESTHESIA
     Dosage: 1 G, FREQ: TOTAL
     Dates: start: 20151126, end: 20151126
  5. SEVOFLURANE. [Suspect]
     Active Substance: SEVOFLURANE
     Indication: ANAESTHESIA
     Dosage: 1 DF, FREQ: TOTAL
     Dates: start: 20151126, end: 20151126

REACTIONS (1)
  - Anaphylactic shock [Recovered/Resolved]

NARRATIVE: CASE EVENT DATE: 20151126
